FAERS Safety Report 10599760 (Version 1)
Quarter: 2014Q4

REPORT INFORMATION
  Report Type: Spontaneous
  Country: GB (occurrence: GB)
  Receive Date: 20141121
  Receipt Date: 20141121
  Transmission Date: 20150529
  Serious: Yes (Other)
  Sender: FDA-Public Use
  Company Number: GB-PFIZER INC-2014319337

PATIENT
  Age: 59 Year
  Sex: Male
  Weight: 78 kg

DRUGS (1)
  1. CHAMPIX [Suspect]
     Active Substance: VARENICLINE TARTRATE
     Indication: SMOKING CESSATION THERAPY
     Dosage: 1 MG, 2X/DAY
     Route: 048
     Dates: start: 20141024

REACTIONS (12)
  - Anxiety [Recovered/Resolved]
  - Abnormal dreams [Recovered/Resolved]
  - Crying [Recovered/Resolved]
  - Excessive exercise [Unknown]
  - Tension [Unknown]
  - Depression [Recovered/Resolved]
  - Nicotine dependence [Recovering/Resolving]
  - Psychotic disorder [Recovered/Resolved]
  - Muscle tightness [Recovered/Resolved]
  - Decreased appetite [Recovered/Resolved]
  - Mental impairment [Recovered/Resolved]
  - Tobacco user [Recovering/Resolving]

NARRATIVE: CASE EVENT DATE: 20141030
